FAERS Safety Report 12886785 (Version 6)
Quarter: 2017Q1

REPORT INFORMATION
  Report Type: Report from Study
  Country: US (occurrence: US)
  Receive Date: 20161026
  Receipt Date: 20170317
  Transmission Date: 20170428
  Serious: Yes (Hospitalization, Other)
  Sender: FDA-Public Use
  Company Number: US-ACTELION-A-NJ2015-125808

PATIENT
  Age: 31 Year
  Sex: Female
  Weight: 77.98 kg

DRUGS (3)
  1. OPSUMIT [Suspect]
     Active Substance: MACITENTAN
     Indication: PULMONARY ARTERIAL HYPERTENSION
     Dosage: 10 MG, QD
     Route: 048
     Dates: start: 20150924
  2. UPTRAVI [Suspect]
     Active Substance: SELEXIPAG
     Indication: PULMONARY ARTERIAL HYPERTENSION
     Dosage: UNK
     Route: 048
  3. OMEPRAZOLE. [Concomitant]
     Active Substance: OMEPRAZOLE

REACTIONS (18)
  - Ascites [Unknown]
  - Headache [Unknown]
  - Cellulitis [Recovered/Resolved]
  - Swelling [Recovered/Resolved]
  - Erythema [Recovered/Resolved]
  - Acute kidney injury [Unknown]
  - Hyperbilirubinaemia [Unknown]
  - Chest pain [Recovered/Resolved]
  - Viral infection [Recovered/Resolved]
  - Abdominal pain upper [Unknown]
  - Pulmonary arterial hypertension [Unknown]
  - Haematochezia [Unknown]
  - Rhinorrhoea [Recovered/Resolved]
  - Pain [Recovered/Resolved]
  - Hypokalaemia [Unknown]
  - Dyspnoea [Unknown]
  - Vomiting [Unknown]
  - Cough [Recovered/Resolved]

NARRATIVE: CASE EVENT DATE: 20151001
